FAERS Safety Report 12222063 (Version 2)
Quarter: 2016Q1

REPORT INFORMATION
  Report Type: Spontaneous
  Country: JP (occurrence: JP)
  Receive Date: 20160330
  Receipt Date: 20160330
  Transmission Date: 20160526
  Serious: Yes (Life-Threatening, Hospitalization, Disabling)
  Sender: FDA-Public Use
  Company Number: JP-SA-2016SA060786

PATIENT
  Age: 76 Year
  Sex: Male

DRUGS (4)
  1. SARPOGRELATE [Suspect]
     Active Substance: SARPOGRELATE
     Indication: SPINAL OSTEOARTHRITIS
     Route: 048
  2. PLAVIX [Suspect]
     Active Substance: CLOPIDOGREL BISULFATE
     Indication: CORONARY ARTERY STENOSIS
     Route: 048
     Dates: start: 20150210
  3. HYDROCORTISONE. [Suspect]
     Active Substance: HYDROCORTISONE
     Route: 065
     Dates: start: 2015
  4. ACETYLSALICYLIC ACID [Suspect]
     Active Substance: ASPIRIN
     Indication: CORONARY ARTERY STENOSIS
     Route: 048

REACTIONS (12)
  - Pituitary haemorrhage [Recovering/Resolving]
  - Headache [Recovering/Resolving]
  - Diabetes insipidus [Recovering/Resolving]
  - Adrenal insufficiency [Recovering/Resolving]
  - Hypernatraemia [Recovering/Resolving]
  - Hyponatraemia [Recovered/Resolved]
  - Blood antidiuretic hormone decreased [Recovering/Resolving]
  - Eyelid ptosis [Unknown]
  - Polyuria [Recovering/Resolving]
  - Tumour haemorrhage [Recovering/Resolving]
  - IIIrd nerve paralysis [Recovering/Resolving]
  - Hypopituitarism [Unknown]

NARRATIVE: CASE EVENT DATE: 2015
